FAERS Safety Report 10169264 (Version 1)
Quarter: 2014Q2

REPORT INFORMATION
  Report Type: Spontaneous
  Country: IE (occurrence: IE)
  Receive Date: 20140513
  Receipt Date: 20140513
  Transmission Date: 20141212
  Serious: Yes (Other)
  Sender: FDA-Public Use
  Company Number: IE-PFIZER INC-2014128708

PATIENT
  Age: 51 Year
  Sex: Male

DRUGS (1)
  1. SUTENT [Suspect]
     Indication: MEDULLARY THYROID CANCER
     Dosage: 50 MG, UNK

REACTIONS (2)
  - Lumbar vertebral fracture [Unknown]
  - Off label use [Unknown]
